FAERS Safety Report 17366398 (Version 7)
Quarter: 2020Q2

REPORT INFORMATION
  Report Type: Spontaneous
  Country: US (occurrence: US)
  Receive Date: 20200204
  Receipt Date: 20200625
  Transmission Date: 20200713
  Serious: No
  Sender: FDA-Public Use
  Company Number: US-SA-2020SA025061

PATIENT

DRUGS (2)
  1. CLEXANE [Suspect]
     Active Substance: ENOXAPARIN SODIUM
     Dosage: 0.8 ML
     Route: 065
     Dates: start: 20200117
  2. CLEXANE [Suspect]
     Active Substance: ENOXAPARIN SODIUM
     Indication: THROMBOSIS
     Dosage: 100 MG/ML
     Route: 065
     Dates: start: 20191225

REACTIONS (5)
  - Injection site nodule [Unknown]
  - Device leakage [Unknown]
  - Injection site bruising [Unknown]
  - Device issue [Unknown]
  - Hepatic enzyme increased [Unknown]
